FAERS Safety Report 12835641 (Version 2)
Quarter: 2016Q4

REPORT INFORMATION
  Report Type: Spontaneous
  Country: US (occurrence: US)
  Receive Date: 20161011
  Receipt Date: 20161220
  Transmission Date: 20170207
  Serious: No
  Sender: FDA-Public Use
  Company Number: US-WATSON-2016-01548

PATIENT
  Sex: Female
  Weight: 61 kg

DRUGS (13)
  1. SKELAXIN [Suspect]
     Active Substance: METAXALONE
     Indication: DYSTONIA
     Dosage: 800 MG, DAILY
     Route: 065
     Dates: start: 2009
  2. SOMA [Suspect]
     Active Substance: CARISOPRODOL
     Indication: TREMOR
     Dosage: 250 MG, QID
     Route: 065
     Dates: start: 20160106
  3. CLONAZEPAM (AELLC) [Suspect]
     Active Substance: CLONAZEPAM
     Indication: NEURALGIA
     Dosage: 0.5 MG TWICE DAILY
     Route: 065
     Dates: start: 2006
  4. CYMBALTA [Suspect]
     Active Substance: DULOXETINE HYDROCHLORIDE
     Indication: DEPRESSION
  5. SKELAXIN [Suspect]
     Active Substance: METAXALONE
     Indication: POST-TRAUMATIC STRESS DISORDER
  6. NEURONTIN [Concomitant]
     Active Substance: GABAPENTIN
     Dosage: 400 MG, QID
     Route: 065
  7. FLEXERIL [Suspect]
     Active Substance: CYCLOBENZAPRINE HYDROCHLORIDE
     Indication: MUSCULOSKELETAL DISCOMFORT
     Dosage: UNK, UNKNOWN
     Route: 065
     Dates: start: 2009, end: 2012
  8. COGENTIN [Concomitant]
     Active Substance: BENZTROPINE MESYLATE
     Indication: DYSTONIA
     Dosage: 1 MG, BID
     Route: 065
     Dates: start: 201510
  9. BACLOFEN (WATSON LABORATORIES) [Suspect]
     Active Substance: BACLOFEN
     Indication: PRODUCT USED FOR UNKNOWN INDICATION
     Dosage: UNK, UNKNOWN
     Route: 065
     Dates: start: 2015, end: 2015
  10. ADDERALL [Concomitant]
     Active Substance: AMPHETAMINE ASPARTATE\AMPHETAMINE SULFATE\DEXTROAMPHETAMINE SACCHARATE\DEXTROAMPHETAMINE SULFATE
     Indication: ATTENTION DEFICIT/HYPERACTIVITY DISORDER
     Dosage: 30 MG, BID
     Route: 065
  11. SKELAXIN [Suspect]
     Active Substance: METAXALONE
     Indication: COMPLEX REGIONAL PAIN SYNDROME
  12. CYMBALTA [Suspect]
     Active Substance: DULOXETINE HYDROCHLORIDE
     Indication: PAIN
     Dosage: 90 MG, DAILY
     Route: 065
     Dates: start: 2009, end: 2013
  13. NEURONTIN [Concomitant]
     Active Substance: GABAPENTIN
     Indication: NEURALGIA
     Dosage: 800 MG, TID
     Route: 065
     Dates: start: 2009

REACTIONS (1)
  - Drug ineffective [Unknown]
